FAERS Safety Report 9055617 (Version 2)
Quarter: 2013Q2

REPORT INFORMATION
  Report Type: Report from Study
  Country: NL (occurrence: NL)
  Receive Date: 20130206
  Receipt Date: 20130604
  Transmission Date: 20140414
  Serious: Yes (Life-Threatening, Hospitalization)
  Sender: FDA-Public Use
  Company Number: NL-009507513-1301USA014385

PATIENT
  Age: 42 Year
  Sex: Female
  Weight: 84 kg

DRUGS (3)
  1. TEMOZOLOMIDE [Suspect]
     Dosage: 140 MG, CONCURRENT: 75 MG/M2/D, DURING RT
     Route: 048
     Dates: start: 20130107, end: 20130123
  2. LEVETIRACETAM [Concomitant]
     Indication: EPILEPSY
     Dosage: 500 MG, BID
     Route: 048
     Dates: start: 20130124, end: 20130125
  3. DEXAMETHASONE [Concomitant]
     Indication: NEOPLASM
     Dosage: 1.5 MG, BID
     Route: 048
     Dates: start: 20130124, end: 20130302

REACTIONS (1)
  - Sepsis [Recovered/Resolved]
